FAERS Safety Report 23686799 (Version 1)
Quarter: 2024Q1

REPORT INFORMATION
  Report Type: Spontaneous
  Country: US (occurrence: US)
  Receive Date: 20240329
  Receipt Date: 20240329
  Transmission Date: 20240410
  Serious: Yes (Other)
  Sender: FDA-Public Use
  Company Number: US-PFIZER INC-202400072217

PATIENT
  Age: 50 Year
  Sex: Female

DRUGS (1)
  1. ESTRING [Suspect]
     Active Substance: ESTRADIOL
     Dosage: 7.5 EVERY 24 HOURS, 90 DAY SUPPLY

REACTIONS (3)
  - Discomfort [Unknown]
  - Discharge [Unknown]
  - Pain [Unknown]

NARRATIVE: CASE EVENT DATE: 20240321
